FAERS Safety Report 23140233 (Version 1)
Quarter: 2023Q4

REPORT INFORMATION
  Report Type: Report from Study
  Country: JP (occurrence: JP)
  Receive Date: 20231102
  Receipt Date: 20231102
  Transmission Date: 20240109
  Serious: Yes (Hospitalization)
  Sender: FDA-Public Use
  Company Number: JP-BIOGEN-2018BI00552430

PATIENT
  Age: 2 Year
  Sex: Female
  Weight: 12.7 kg

DRUGS (9)
  1. SPINRAZA [Suspect]
     Active Substance: NUSINERSEN
     Indication: Spinal muscular atrophy
     Route: 050
     Dates: start: 20171005
  2. SPINRAZA [Suspect]
     Active Substance: NUSINERSEN
     Route: 050
     Dates: start: 20190409
  3. CARBOCYSTEINE [Concomitant]
     Active Substance: CARBOCYSTEINE
     Indication: Spinal muscular atrophy
     Route: 050
  4. CARBOCYSTEINE [Concomitant]
     Active Substance: CARBOCYSTEINE
     Route: 050
     Dates: start: 20180730
  5. AMBROXOL HYDROCHLORIDE [Concomitant]
     Active Substance: AMBROXOL HYDROCHLORIDE
     Indication: Spinal muscular atrophy
     Route: 050
  6. AMBROXOL HYDROCHLORIDE [Concomitant]
     Active Substance: AMBROXOL HYDROCHLORIDE
     Route: 050
     Dates: start: 20180730
  7. MOSAPRIDE CITRATE [Concomitant]
     Active Substance: MOSAPRIDE CITRATE
     Indication: Spinal muscular atrophy
     Route: 050
  8. MOSAPRIDE CITRATE [Concomitant]
     Active Substance: MOSAPRIDE CITRATE
     Route: 050
     Dates: start: 20180730
  9. LIDOCAINE/PROPITOCAINE COMBINED DRUG [Concomitant]
     Indication: Anaesthesia procedure
     Dosage: LIDOCAINE 25 MG / PROPITOCAINE 25
     Route: 050
     Dates: start: 20190409

REACTIONS (2)
  - Pneumonia aspiration [Recovered/Resolved]
  - Gastrointestinal disorder [Not Recovered/Not Resolved]

NARRATIVE: CASE EVENT DATE: 20180405
